FAERS Safety Report 8906380 (Version 1)
Quarter: 2012Q4

REPORT INFORMATION
  Report Type: Spontaneous
  Country: US (occurrence: None)
  Receive Date: 20121112
  Receipt Date: 20121112
  Transmission Date: 20130627
  Serious: Yes (Other)
  Sender: FDA-Public Use
  Company Number: None

PATIENT
  Age: 68 Year
  Sex: Female
  Weight: 68.04 kg

DRUGS (1)
  1. SUMATRIPTAN, 100MG, RANBAXY [Suspect]
     Indication: MIGRAINE
     Dosage: 1 tablet
     Dates: start: 20120904

REACTIONS (5)
  - Asthenia [None]
  - Gait disturbance [None]
  - Dyspnoea [None]
  - Paraesthesia [None]
  - Chills [None]
